FAERS Safety Report 4805535-5 (Version None)
Quarter: 2005Q4

REPORT INFORMATION
  Report Type: 
  Country: None (occurrence: None)
  Receive Date: 20051021
  Receipt Date: 20051012
  Transmission Date: 20060501
  Serious: Yes (Death)
  Sender: FDA-Public Use
  Company Number: US-BOEHRINGER INGELHEIM PHARMACEUTICALS, INC.-2005-DE-04229GD

PATIENT
  Age: 23 Year
  Sex: Male

DRUGS (10)
  1. NEVIRAPINE [Suspect]
     Indication: ACQUIRED IMMUNODEFICIENCY SYNDROME
  2. ZIDOVUDINE [Suspect]
     Indication: ACQUIRED IMMUNODEFICIENCY SYNDROME
  3. LAMIVUDINE [Suspect]
     Indication: ACQUIRED IMMUNODEFICIENCY SYNDROME
  4. NELFINAVIR [Suspect]
     Indication: ACQUIRED IMMUNODEFICIENCY SYNDROME
  5. PAREGORIC [Suspect]
     Indication: GASTROENTERITIS CRYPTOSPORIDIAL
  6. PAROMOMYCIN [Suspect]
     Indication: GASTROENTERITIS CRYPTOSPORIDIAL
  7. AZITHROMYCIN [Suspect]
     Indication: GASTROENTERITIS CRYPTOSPORIDIAL
  8. RECOMBINANT INTERLEUKIN-12 [Suspect]
     Indication: GASTROENTERITIS CRYPTOSPORIDIAL
     Dosage: 80 NG/KG TWICE A WEEK
     Route: 058
  9. RITONAVIR [Suspect]
     Indication: ACQUIRED IMMUNODEFICIENCY SYNDROME
  10. SAQUINAVIR [Suspect]
     Indication: ACQUIRED IMMUNODEFICIENCY SYNDROME

REACTIONS (10)
  - CAPILLARY LEAK SYNDROME [None]
  - CENTRAL LINE INFECTION [None]
  - CONDITION AGGRAVATED [None]
  - DRUG INEFFECTIVE [None]
  - GASTROENTERITIS CRYPTOSPORIDIAL [None]
  - GENERALISED OEDEMA [None]
  - HYPOTENSION [None]
  - NON-CARDIOGENIC PULMONARY OEDEMA [None]
  - PYREXIA [None]
  - STAPHYLOCOCCAL INFECTION [None]
